FAERS Safety Report 7243593-1 (Version None)
Quarter: 2011Q1

REPORT INFORMATION
  Report Type: 
  Country: None (occurrence: None)
  Receive Date: 20110125
  Receipt Date: 20110113
  Transmission Date: 20110831
  Serious: Yes (Other)
  Sender: FDA-Public Use
  Company Number: PHHY2011DE02874

PATIENT
  Age: 66 Year
  Sex: Female

DRUGS (2)
  1. LEPONEX [Suspect]
     Dosage: 50 MG, QD
     Route: 048
  2. GABAPENTIN [Concomitant]
     Indication: POLYNEUROPATHY

REACTIONS (1)
  - POLYNEUROPATHY [None]
